FAERS Safety Report 6735002-3 (Version None)
Quarter: 2010Q2

REPORT INFORMATION
  Report Type: 
  Country: None (occurrence: None)
  Receive Date: 20100521
  Receipt Date: 20100511
  Transmission Date: 20101027
  Serious: Yes (Other)
  Sender: FDA-Public Use
  Company Number: US-PFIZER INC-2010060033

PATIENT
  Sex: Female

DRUGS (1)
  1. TOVIAZ [Suspect]
     Indication: INCONTINENCE
     Dosage: 4 MG, DAILY
     Route: 048
     Dates: start: 20100501

REACTIONS (1)
  - VISION BLURRED [None]
